FAERS Safety Report 16280015 (Version 1)
Quarter: 2019Q2

REPORT INFORMATION
  Report Type: Report from Study
  Country: US (occurrence: US)
  Receive Date: 20190507
  Receipt Date: 20190507
  Transmission Date: 20190711
  Serious: Yes (Hospitalization, Other)
  Sender: FDA-Public Use
  Company Number: US-ROCHE-2310642

PATIENT
  Age: 70 Year
  Sex: Male

DRUGS (23)
  1. MANNITOL. [Concomitant]
     Active Substance: MANNITOL
  2. DILAUDID [Concomitant]
     Active Substance: HYDROMORPHONE HYDROCHLORIDE
  3. LOPRESSOR [Concomitant]
     Active Substance: METOPROLOL TARTRATE
  4. VALCYTE [Concomitant]
     Active Substance: VALGANCICLOVIR HYDROCHLORIDE
  5. ZOFRAN [Concomitant]
     Active Substance: ONDANSETRON HYDROCHLORIDE
  6. MAGNESIUM SULFATE. [Concomitant]
     Active Substance: MAGNESIUM SULFATE
  7. MYCOPHENOLATE MOFETIL. [Suspect]
     Active Substance: MYCOPHENOLATE MOFETIL
     Indication: DELAYED GRAFT FUNCTION
     Route: 065
  8. BLINDED QPI-1002 [Suspect]
     Active Substance: TEPRASIRAN
     Indication: DELAYED GRAFT FUNCTION
     Route: 065
  9. FENTANYL. [Concomitant]
     Active Substance: FENTANYL
  10. HEPARIN [Concomitant]
     Active Substance: HEPARIN SODIUM
  11. CALCIUM GLUCONATE. [Concomitant]
     Active Substance: CALCIUM GLUCONATE
  12. COLACE [Concomitant]
     Active Substance: DOCUSATE SODIUM
  13. BACTRIM [Concomitant]
     Active Substance: SULFAMETHOXAZOLE\TRIMETHOPRIM
  14. MYCOSTATIN [Concomitant]
     Active Substance: NYSTATIN
  15. LABETALOL [Concomitant]
     Active Substance: LABETALOL\LABETALOL HYDROCHLORIDE
  16. CELLCEPT [Concomitant]
     Active Substance: MYCOPHENOLATE MOFETIL\MYCOPHENOLATE MOFETIL HYDROCHLORIDE
  17. PROGRAF [Concomitant]
     Active Substance: TACROLIMUS\TACROLIMUS ANHYDROUS
  18. PEPCID [Concomitant]
     Active Substance: FAMOTIDINE
  19. ASPIRIN [ACETYLSALICYLIC ACID] [Concomitant]
     Active Substance: ASPIRIN
  20. CEPACOL [BENZOCAINE] [Concomitant]
  21. LASIX [Concomitant]
     Active Substance: FUROSEMIDE
  22. FLOMAX [Concomitant]
     Active Substance: TAMSULOSIN HYDROCHLORIDE
  23. MYFORTIC [Concomitant]
     Active Substance: MYCOPHENOLATE SODIUM

REACTIONS (2)
  - Gastroenteritis viral [Recovered/Resolved]
  - Urinary retention [Recovered/Resolved]

NARRATIVE: CASE EVENT DATE: 20170713
